FAERS Safety Report 8068961-X (Version None)
Quarter: 2012Q1

REPORT INFORMATION
  Report Type: 
  Country: None (occurrence: None)
  Receive Date: 20120118
  Receipt Date: 20120103
  Transmission Date: 20120608
  Serious: Yes (Life-Threatening, Hospitalization, Other)
  Sender: FDA-Public Use
  Company Number: 09-AUR-09525

PATIENT
  Age: 44 Year
  Sex: Female

DRUGS (14)
  1. ASPIRIN [Concomitant]
  2. BENDROFLUAZIDE (BENDROFLUMETHAZIDE) [Concomitant]
  3. ATENOLOL [Concomitant]
  4. DEXAMETHASONE [Suspect]
     Indication: PRODUCT USED FOR UNKNOWN INDICATION
  5. MORPHINE [Concomitant]
  6. ALFENTANIL [Concomitant]
  7. ISOSORBIDE MONONITRATE [Concomitant]
  8. METHYLENE BLUE (METHYLTHIONINIUM CHLORIDE) [Suspect]
     Indication: PARATHYROIDECTOMY
     Dosage: 1 IN 2 HR, INTRAVENOUS
     Route: 042
  9. PROPOFOL [Suspect]
     Indication: PRODUCT USED FOR UNKNOWN INDICATION
  10. SIMVASTATIN [Concomitant]
  11. CITALOPRAM HYDROBROMIDE [Suspect]
     Indication: DEPRESSION
     Dosage: 20 MG (20 MG, 1 IN 1 D),ORAL
     Route: 048
  12. REMIFENTANIL (REMIFENTANIL) [Suspect]
     Indication: PRODUCT USED FOR UNKNOWN INDICATION
  13. ROCURONIUM BROMIDE [Suspect]
     Indication: PREOPERATIVE CARE
  14. FELODIPINE [Concomitant]

REACTIONS (21)
  - SPEECH DISORDER [None]
  - SEROTONIN SYNDROME [None]
  - COMA SCALE ABNORMAL [None]
  - BLOOD PHOSPHORUS INCREASED [None]
  - WHITE BLOOD CELL COUNT INCREASED [None]
  - HYPERREFLEXIA [None]
  - STARING [None]
  - MYDRIASIS [None]
  - TOXICITY TO VARIOUS AGENTS [None]
  - PUPILLARY REFLEX IMPAIRED [None]
  - EXTENSOR PLANTAR RESPONSE [None]
  - OXYGEN SATURATION DECREASED [None]
  - DRUG INTERACTION [None]
  - MYOCLONUS [None]
  - AGITATION [None]
  - AKATHISIA [None]
  - HYPERPARATHYROIDISM [None]
  - C-REACTIVE PROTEIN INCREASED [None]
  - BLOOD CALCIUM INCREASED [None]
  - RESTLESSNESS [None]
  - POST PROCEDURAL COMPLICATION [None]
